FAERS Safety Report 6194298-X (Version None)
Quarter: 2009Q2

REPORT INFORMATION
  Report Type: 
  Country: None (occurrence: None)
  Receive Date: 20090519
  Receipt Date: 20090514
  Transmission Date: 20091009
  Serious: Yes (Other)
  Sender: FDA-Public Use
  Company Number: DE-BRISTOL-MYERS SQUIBB COMPANY-14624969

PATIENT
  Sex: Female

DRUGS (1)
  1. TAXOL [Suspect]
     Dosage: LAST CHEMOTHERAPHY WITH TAXOL ON 16APR2009

REACTIONS (2)
  - COLITIS ULCERATIVE [None]
  - ENCEPHALOPATHY [None]
